FAERS Safety Report 10465731 (Version 1)
Quarter: 2014Q3

REPORT INFORMATION
  Report Type: Spontaneous
  Country: US (occurrence: US)
  Receive Date: 20140919
  Receipt Date: 20140919
  Transmission Date: 20150326
  Serious: Yes (Hospitalization)
  Sender: FDA-Public Use
  Company Number: US-B.I. PHARMACEUTICALS,INC./RIDGEFIELD-2014-BI-43891BP

PATIENT
  Age: 71 Year
  Sex: Female

DRUGS (1)
  1. PRADAXA [Suspect]
     Active Substance: DABIGATRAN ETEXILATE MESYLATE
     Indication: PRODUCT USED FOR UNKNOWN INDICATION
     Dosage: 300 MG
     Route: 065
     Dates: start: 20110603, end: 20120911

REACTIONS (6)
  - Hypotension [Unknown]
  - Gastrointestinal haemorrhage [Unknown]
  - Lymphoedema [Unknown]
  - Gastric ulcer [Unknown]
  - Oesophagitis [Unknown]
  - Cellulitis [Unknown]

NARRATIVE: CASE EVENT DATE: 2011
